FAERS Safety Report 21239979 (Version 1)
Quarter: 2022Q3

REPORT INFORMATION
  Report Type: Spontaneous
  Country: US (occurrence: None)
  Receive Date: 20220820
  Receipt Date: 20220820
  Transmission Date: 20221027
  Serious: No
  Sender: FDA-Public Use
  Company Number: None

PATIENT
  Age: 44 Year
  Sex: 0
  Weight: 61 kg

DRUGS (3)
  1. AMOXICILLIN [Suspect]
     Active Substance: AMOXICILLIN
     Indication: Ear infection
     Dosage: OTHER QUANTITY : 500 CAPSULE(S);?FREQUENCY : EVERY 8 HOURS;?
     Route: 048
     Dates: start: 20220819
  2. VITAMIN C [Concomitant]
     Active Substance: ASCORBIC ACID
  3. MAGNESIUM [Concomitant]
     Active Substance: MAGNESIUM

REACTIONS (2)
  - Dysgeusia [None]
  - Oral discomfort [None]

NARRATIVE: CASE EVENT DATE: 20220820
